FAERS Safety Report 19877786 (Version 1)
Quarter: 2021Q3

REPORT INFORMATION
  Report Type: Spontaneous
  Country: US (occurrence: US)
  Receive Date: 20210923
  Receipt Date: 20210923
  Transmission Date: 20211014
  Serious: No
  Sender: FDA-Public Use
  Company Number: US-CELGENEUS-USA-20210903684

PATIENT
  Sex: Female
  Weight: 81.27 kg

DRUGS (5)
  1. REVLIMID [Suspect]
     Active Substance: LENALIDOMIDE
     Dosage: 25 MILLIGRAM
     Route: 048
     Dates: start: 20150101
  2. REVLIMID [Suspect]
     Active Substance: LENALIDOMIDE
     Dosage: 10 ?15 MILLIGRAM
     Route: 048
     Dates: start: 200705
  3. REVLIMID [Suspect]
     Active Substance: LENALIDOMIDE
     Indication: PLASMA CELL MYELOMA
     Dosage: 25 MILLIGRAM
     Route: 048
     Dates: start: 200703
  4. REVLIMID [Suspect]
     Active Substance: LENALIDOMIDE
     Dosage: 10?25 MILLIGRAM
     Route: 048
     Dates: start: 200709
  5. REVLIMID [Suspect]
     Active Substance: LENALIDOMIDE
     Dosage: 15 ?10 MILLIGRAM
     Route: 048
     Dates: start: 200911

REACTIONS (1)
  - Weight decreased [Unknown]
